FAERS Safety Report 5000359-0 (Version None)
Quarter: 2006Q1

REPORT INFORMATION
  Report Type: 
  Country: None (occurrence: None)
  Receive Date: 20060315
  Receipt Date: 20060207
  Transmission Date: 20060701
  Serious: Yes (Other)
  Sender: FDA-Public Use
  Company Number: 435553

PATIENT
  Sex: Female

DRUGS (7)
  1. BONIVA [Suspect]
     Indication: DRUG USE FOR UNKNOWN INDICATION
     Dosage: ORAL
     Route: 048
     Dates: start: 20060122
  2. MULTIVITAMIN [Concomitant]
  3. CALCIUM (CALCIUM) [Concomitant]
  4. FLAXSEED (LINUM USITATISSIMUM) [Concomitant]
  5. FISH OIL (FISH OIL) [Concomitant]
  6. GLUCOSAMINE (GLUCOSAMINE) [Concomitant]
  7. CHONDROITIN (CHONDROITIN SULFATE) [Concomitant]

REACTIONS (1)
  - PAIN IN EXTREMITY [None]
